FAERS Safety Report 23969885 (Version 1)
Quarter: 2024Q2

REPORT INFORMATION
  Report Type: Spontaneous
  Country: IN (occurrence: IN)
  Receive Date: 20240613
  Receipt Date: 20240613
  Transmission Date: 20240715
  Serious: Yes (Hospitalization)
  Sender: FDA-Public Use
  Company Number: IN-MEDLEY-000009

PATIENT
  Age: 24 Year
  Sex: Male

DRUGS (1)
  1. LACOSAMIDE [Suspect]
     Active Substance: LACOSAMIDE
     Indication: Seizure prophylaxis
     Route: 065

REACTIONS (4)
  - Onychomadesis [Recovered/Resolved]
  - Nail discolouration [Recovered/Resolved]
  - Nail bed bleeding [Recovered/Resolved]
  - Bacterial nail infection [Recovered/Resolved]
